FAERS Safety Report 7292761-1 (Version None)
Quarter: 2011Q1

REPORT INFORMATION
  Report Type: 
  Country: None (occurrence: None)
  Receive Date: 20110203
  Receipt Date: 20110120
  Transmission Date: 20110831
  Serious: No
  Sender: FDA-Public Use
  Company Number: 2011-00026

PATIENT
  Sex: Female
  Weight: 67.1324 kg

DRUGS (1)
  1. ZICAM COLD REMEDY NASAL GEL [Suspect]
     Dosage: EVERY 2-3 HOURS
     Dates: start: 19970101

REACTIONS (1)
  - ANOSMIA [None]
